FAERS Safety Report 11441870 (Version 1)
Quarter: 2015Q3

REPORT INFORMATION
  Report Type: Spontaneous
  Country: DK (occurrence: DK)
  Receive Date: 20150901
  Receipt Date: 20150901
  Transmission Date: 20151125
  Serious: Yes (Hospitalization)
  Sender: FDA-Public Use
  Company Number: PHHY2015DK103092

PATIENT
  Age: 58 Year
  Sex: Female

DRUGS (1)
  1. PARACETAMOL [Suspect]
     Active Substance: ACETAMINOPHEN
     Indication: PRODUCT USED FOR UNKNOWN INDICATION
     Route: 048
     Dates: start: 20140225

REACTIONS (7)
  - Suicide attempt [Recovered/Resolved]
  - Pneumonia aspiration [Recovered/Resolved]
  - Toxicity to various agents [Recovered/Resolved]
  - Blood creatine phosphokinase increased [Recovered/Resolved]
  - Rhabdomyolysis [Recovered/Resolved]
  - Depressed level of consciousness [Recovered/Resolved]
  - Oxygen saturation decreased [Recovered/Resolved]

NARRATIVE: CASE EVENT DATE: 20140225
